FAERS Safety Report 8555491-1 (Version None)
Quarter: 2012Q3

REPORT INFORMATION
  Report Type: 
  Country: None (occurrence: None)
  Receive Date: 20120731
  Receipt Date: 20111102
  Transmission Date: 20120928
  Serious: No
  Sender: FDA-Public Use
  Company Number: US-ASTRAZENECA-2011SE17624

PATIENT
  Age: 42 Year
  Sex: Female

DRUGS (4)
  1. SEROQUEL [Suspect]
     Route: 048
  2. SEROQUEL [Suspect]
     Dosage: 100 MG IN THE MORNING AND 100 MG IN THE EVENING
     Route: 048
  3. SEROQUEL [Suspect]
     Indication: SLEEP DISORDER
     Route: 048
  4. PAXIL [Suspect]
     Route: 065

REACTIONS (9)
  - INSOMNIA [None]
  - DEPRESSED MOOD [None]
  - MALAISE [None]
  - THERAPEUTIC RESPONSE INCREASED [None]
  - SEDATION [None]
  - WEIGHT INCREASED [None]
  - OFF LABEL USE [None]
  - DRUG DOSE OMISSION [None]
  - ROAD TRAFFIC ACCIDENT [None]
